FAERS Safety Report 6196056-9 (Version None)
Quarter: 2009Q2

REPORT INFORMATION
  Report Type: 
  Country: None (occurrence: None)
  Receive Date: 20090520
  Receipt Date: 20090512
  Transmission Date: 20091009
  Serious: Yes (Other)
  Sender: FDA-Public Use
  Company Number: JP-PFIZER INC-2009211449

PATIENT
  Age: 67 Year

DRUGS (1)
  1. SELARA [Suspect]
     Indication: POLYURIA
     Dosage: 50 MG, 1X/DAY
     Route: 048
     Dates: start: 20090420, end: 20090429

REACTIONS (1)
  - ANAEMIA [None]
